FAERS Safety Report 6384339-9 (Version None)
Quarter: 2009Q3

REPORT INFORMATION
  Report Type: 
  Country: None (occurrence: None)
  Receive Date: 20090929
  Receipt Date: 20090918
  Transmission Date: 20100115
  Serious: Yes (Hospitalization)
  Sender: FDA-Public Use
  Company Number: 2009JP005761

PATIENT
  Age: 73 Year
  Sex: Male

DRUGS (1)
  1. VESICARE [Suspect]
     Dosage: 5 MG, /D, ORAL
     Route: 048
     Dates: start: 20090804, end: 20090101

REACTIONS (1)
  - PLATELET COUNT DECREASED [None]
